FAERS Safety Report 8773139 (Version 2)
Quarter: 2012Q4

REPORT INFORMATION
  Report Type: 
  Country: DE (occurrence: DE)
  Receive Date: 20120907
  Receipt Date: 20121126
  Transmission Date: 20130627
  Serious: Yes (Death, Hospitalization)
  Sender: FDA-Public Use
  Company Number: PHHY2012DE076810

PATIENT
  Age: 89 Year
  Sex: Male

DRUGS (16)
  1. ALFUZOSIN [Suspect]
     Dosage: 10 mg, UNK
  2. RISPERIDONE [Suspect]
     Dosage: 1 mg, UNK
  3. RISPERIDONE [Suspect]
     Dosage: 1.5 mg, UNK
  4. GALANTAMINE [Suspect]
     Dosage: 16 mg, UNK
  5. MELPERONE [Suspect]
     Dosage: 25-50 mg four times daily
  6. MELPERONE [Suspect]
     Dosage: 250 mg, UNK
  7. HALOPERIDOL [Suspect]
     Dosage: 5 mg, UNK
  8. HALOPERIDOL [Suspect]
     Dosage: 3 mg, UNK
  9. HALOPERIDOL [Suspect]
     Dosage: 2.5 mg, UNK
  10. CAPTOPRIL [Concomitant]
     Dosage: 50 mg, UNK
  11. HYDROCHLOROTHIAZIDE [Concomitant]
     Dosage: 25 mg, UNK
  12. BISOPROLOL [Concomitant]
     Dosage: 5 mg, UNK
  13. ISOSORBIDE DINITRATE [Concomitant]
     Dosage: 120 mg, UNK
  14. ASPIRIN [Concomitant]
     Dosage: 100 mg, UNK
  15. LORAZEPAM [Concomitant]
     Dosage: 2 mg, UNK
  16. OXAZEPAM [Concomitant]
     Indication: SLEEP DISORDER

REACTIONS (8)
  - Sudden death [Fatal]
  - Arrhythmia [Fatal]
  - Embolism [Fatal]
  - Hypotension [Fatal]
  - Anxiety [Unknown]
  - Aggression [Unknown]
  - Confusional state [Unknown]
  - Fatigue [Unknown]
